FAERS Safety Report 4500495-9 (Version None)
Quarter: 2004Q3

REPORT INFORMATION
  Report Type: 
  Country: None (occurrence: None)
  Receive Date: 20040928
  Receipt Date: 20040827
  Transmission Date: 20050211
  Serious: No
  Sender: FDA-Public Use
  Company Number: 04P-163-0271796-00

PATIENT
  Age: 54 Year
  Sex: Female
  Weight: 79.3795 kg

DRUGS (6)
  1. HUMIRA [Suspect]
     Indication: RHEUMATOID ARTHRITIS
     Dosage: 40 MG, 1 IN 2 WK, SUBCUTANEOUS
     Route: 058
     Dates: start: 20040729
  2. ATENOLOL [Concomitant]
  3. HYDROCHLOROTHIAZIDE [Concomitant]
  4. ZOCOR [Concomitant]
  5. RAMIPRIL [Concomitant]
  6. METHOTREXATE [Concomitant]

REACTIONS (1)
  - INJECTION SITE REACTION [None]
